FAERS Safety Report 7219161-4 (Version None)
Quarter: 2011Q1

REPORT INFORMATION
  Report Type: 
  Country: None (occurrence: None)
  Receive Date: 20110111
  Receipt Date: 20101229
  Transmission Date: 20110831
  Serious: Yes (Life-Threatening, Hospitalization)
  Sender: FDA-Public Use
  Company Number: US-CELGENEUS-163-21880-10123298

PATIENT
  Sex: Male
  Weight: 72.5 kg

DRUGS (13)
  1. REVLIMID [Suspect]
     Indication: MULTIPLE MYELOMA
     Route: 048
     Dates: start: 20101001, end: 20101201
  2. ASPIRIN [Concomitant]
     Route: 048
  3. DEXAMETHASONE [Concomitant]
     Route: 048
  4. ACYCLOVIR [Concomitant]
     Indication: ANTIVIRAL PROPHYLAXIS
     Route: 048
  5. POLYETHYLENE GLYCOL [Concomitant]
     Indication: CONSTIPATION
     Route: 048
  6. BACITRACIN [Concomitant]
     Route: 061
  7. REVLIMID [Suspect]
     Route: 048
     Dates: start: 20101201
  8. DUTASTERIDE [Concomitant]
     Indication: BLADDER DISORDER
     Route: 048
  9. TAMSULOSIN HCL [Concomitant]
     Indication: BLADDER DISORDER
     Route: 048
  10. GABAPENTIN [Concomitant]
     Route: 048
  11. CIPROFLAXACIN [Concomitant]
     Indication: INFECTION
     Route: 048
  12. SENNA [Concomitant]
     Indication: CONSTIPATION
     Route: 048
  13. DOCUSATE [Concomitant]
     Indication: CONSTIPATION
     Route: 048

REACTIONS (3)
  - THROMBOSIS [None]
  - PAIN [None]
  - PULMONARY EMBOLISM [None]
